FAERS Safety Report 24530962 (Version 1)
Quarter: 2024Q4

REPORT INFORMATION
  Report Type: Spontaneous
  Country: US (occurrence: US)
  Receive Date: 20241021
  Receipt Date: 20241021
  Transmission Date: 20250115
  Serious: No
  Sender: ROCHE
  Company Number: US-ROCHE-10000107741

PATIENT
  Age: 52 Year
  Sex: Female

DRUGS (2)
  1. ACTEMRA [Suspect]
     Active Substance: TOCILIZUMAB
     Indication: Interstitial lung disease
     Dosage: IN THE UPPER THIGH
     Route: 058
     Dates: start: 20241006
  2. ACTEMRA [Suspect]
     Active Substance: TOCILIZUMAB
     Indication: Scleroderma

REACTIONS (6)
  - Off label use [Unknown]
  - Device use error [Unknown]
  - Drug delivery system malfunction [Unknown]
  - Wrong technique in device usage process [Unknown]
  - Device malfunction [Unknown]
  - No adverse event [Unknown]

NARRATIVE: CASE EVENT DATE: 20241006
